FAERS Safety Report 6670266-6 (Version None)
Quarter: 2010Q2

REPORT INFORMATION
  Report Type: 
  Country: None (occurrence: None)
  Receive Date: 20100405
  Receipt Date: 20100322
  Transmission Date: 20101027
  Serious: Yes (Death)
  Sender: FDA-Public Use
  Company Number: 1-22094032

PATIENT
  Age: 61 Year
  Sex: Male

DRUGS (4)
  1. FENTANYL-25 [Suspect]
     Indication: ENDOTRACHEAL INTUBATION
     Dosage: 100 MCG, INTRAVENOUS
     Route: 042
     Dates: start: 20010212, end: 20100212
  2. CO-AMOXICLAV (AMOXICILLIN, CLAVULANIC ACID) INJ. [Suspect]
     Indication: ANTIBIOTIC PROPHYLAXIS
     Dosage: 1200 MG, INTRAVENOUS
     Route: 042
     Dates: start: 20100212, end: 20100212
  3. ATRACURIUM INJECTION [Suspect]
     Indication: ENDOTRACHEAL INTUBATION
     Dosage: 40 MG, INTRAVENOUS
     Route: 042
     Dates: start: 20100210, end: 20100212
  4. PROPOFOL [Suspect]
     Indication: INDUCTION OF ANAESTHESIA
     Dosage: 200 MG,INTRAVENOUS
     Route: 042
     Dates: start: 20100212, end: 20100212

REACTIONS (1)
  - ANAPHYLACTIC SHOCK [None]
